FAERS Safety Report 7403176-7 (Version None)
Quarter: 2011Q2

REPORT INFORMATION
  Report Type: 
  Country: None (occurrence: None)
  Receive Date: 20110408
  Receipt Date: 20110325
  Transmission Date: 20111010
  Serious: Yes (Death, Other)
  Sender: FDA-Public Use
  Company Number: FR-CUBIST-2011S1000242

PATIENT
  Age: 59 Year
  Sex: Male
  Weight: 50 kg

DRUGS (1)
  1. CUBICIN [Suspect]
     Indication: DEVICE RELATED INFECTION
     Route: 042
     Dates: start: 20110316

REACTIONS (6)
  - NEOPLASM MALIGNANT [None]
  - LACTIC ACIDOSIS [None]
  - SEPTIC SHOCK [None]
  - MENTAL STATUS CHANGES [None]
  - MULTI-ORGAN FAILURE [None]
  - OESOPHAGEAL CARCINOMA [None]
